FAERS Safety Report 22104215 (Version 2)
Quarter: 2024Q1

REPORT INFORMATION
  Report Type: Spontaneous
  Country: US (occurrence: US)
  Receive Date: 20230316
  Receipt Date: 20240318
  Transmission Date: 20240409
  Serious: No
  Sender: FDA-Public Use
  Company Number: US-SMITH AND NEPHEW, INC-2022SMT00140

PATIENT
  Sex: Male
  Weight: 81.633 kg

DRUGS (4)
  1. COLLAGENASE SANTYL [Suspect]
     Active Substance: COLLAGENASE CLOSTRIDIUM HISTOLYTICUM
     Indication: Skin ulcer
     Dosage: NICKEL THICKNESS OVER THE WOUNDS (0.1 CM TO RIGHT ANKLE WOUND, 0.2 CM TO LEFT ANKLE WOUND, 0.1 CM TO
     Route: 061
     Dates: start: 20220103
  2. COLLAGENASE SANTYL [Suspect]
     Active Substance: COLLAGENASE CLOSTRIDIUM HISTOLYTICUM
     Dosage: NICKEL THICKNESS OVER THE WOUNDS (0.1 CM TO RIGHT ANKLE WOUND, 0.2 CM TO LEFT ANKLE WOUND, 0.1 CM TO
     Route: 061
     Dates: end: 20230502
  3. ELIQUIS [Concomitant]
     Active Substance: APIXABAN
  4. AMLODIPINE [Concomitant]
     Active Substance: AMLODIPINE BESYLATE

REACTIONS (4)
  - Pain [Unknown]
  - Wound complication [Not Recovered/Not Resolved]
  - Product prescribing issue [Not Recovered/Not Resolved]
  - Product dose omission issue [Not Recovered/Not Resolved]

NARRATIVE: CASE EVENT DATE: 20220101
